FAERS Safety Report 22321915 (Version 1)
Quarter: 2023Q2

REPORT INFORMATION
  Report Type: Spontaneous
  Country: AR (occurrence: None)
  Receive Date: 20230516
  Receipt Date: 20230516
  Transmission Date: 20230722
  Serious: Yes (Other)
  Sender: FDA-Public Use
  Company Number: AR-ROCHE-3348577

PATIENT
  Age: 81 Year
  Sex: Male

DRUGS (6)
  1. RITUXIMAB [Suspect]
     Active Substance: RITUXIMAB
     Indication: Diffuse large B-cell lymphoma
     Dosage: DOSE AND FREQUENCY WERE NOT REPORTED, 6 CYCLES
     Route: 041
  2. RITUXIMAB [Suspect]
     Active Substance: RITUXIMAB
     Dosage: DOSE AND FREQUENCY WERE NOT REPORTED.
     Route: 042
  3. CYCLOPHOSPHAMIDE [Concomitant]
     Active Substance: CYCLOPHOSPHAMIDE
     Indication: Diffuse large B-cell lymphoma
     Dosage: DOSE AND FREQUENCY WERE NOT REPORTED, 6 CYCLES
     Route: 065
  4. DOXORUBICIN [Concomitant]
     Active Substance: DOXORUBICIN
     Indication: Diffuse large B-cell lymphoma
     Dosage: DOSE AND FREQUENCY WERE NOT REPORTED, 6 CYCLES
     Route: 065
  5. VINCRISTINE [Concomitant]
     Active Substance: VINCRISTINE
     Indication: Diffuse large B-cell lymphoma
     Dosage: DOSE AND FREQUENCY WERE NOT REPORTED, 6 CYCLES
     Route: 065
  6. PREDNISONE [Concomitant]
     Active Substance: PREDNISONE
     Indication: Diffuse large B-cell lymphoma
     Dosage: DOSE AND FREQUENCY WERE NOT REPORTED, 6 CYCLES
     Route: 065

REACTIONS (1)
  - Drug ineffective [Unknown]
